FAERS Safety Report 12709058 (Version 1)
Quarter: 2016Q3

REPORT INFORMATION
  Report Type: Spontaneous
  Country: US (occurrence: US)
  Receive Date: 20160901
  Receipt Date: 20160901
  Transmission Date: 20161109
  Serious: No
  Sender: FDA-Public Use
  Company Number: US-JAZZ-2016-US-008459

PATIENT
  Sex: Female

DRUGS (13)
  1. XYREM [Suspect]
     Active Substance: SODIUM OXYBATE
     Indication: NARCOLEPSY
     Dosage: 2.25 G, BID
     Route: 048
     Dates: start: 200708, end: 200710
  2. ARMOUR THYROID [Concomitant]
     Active Substance: THYROID, PORCINE
  3. MURO-128 [Concomitant]
  4. RESTASIS [Concomitant]
     Active Substance: CYCLOSPORINE
  5. NUVIGIL [Concomitant]
     Active Substance: ARMODAFINIL
  6. PROVIGIL [Concomitant]
     Active Substance: MODAFINIL
  7. SYNTHROID [Concomitant]
     Active Substance: LEVOTHYROXINE SODIUM
  8. PROGESTERONE. [Concomitant]
     Active Substance: PROGESTERONE
  9. ESTROGEL [Concomitant]
     Active Substance: ESTRADIOL
  10. XYREM [Suspect]
     Active Substance: SODIUM OXYBATE
     Dosage: DOSE ADJUSTMENTS
     Route: 048
  11. XYREM [Suspect]
     Active Substance: SODIUM OXYBATE
     Dosage: 4.25 G, FOR FIRST DOSE
     Route: 048
     Dates: start: 201304
  12. XYREM [Suspect]
     Active Substance: SODIUM OXYBATE
     Dosage: 3.75 G, FOR SECOND DOSE
     Route: 048
     Dates: start: 201304
  13. VITAMINS NOS [Concomitant]
     Active Substance: VITAMINS

REACTIONS (1)
  - Gastrooesophageal reflux disease [Unknown]
